FAERS Safety Report 10745378 (Version 2)
Quarter: 2015Q3

REPORT INFORMATION
  Report Type: Spontaneous
  Country: US (occurrence: US)
  Receive Date: 20150128
  Receipt Date: 20150819
  Transmission Date: 20151125
  Serious: No
  Sender: FDA-Public Use
  Company Number: US-GILEAD-2015-0134010

PATIENT
  Age: 88 Year
  Sex: Male

DRUGS (1)
  1. LETAIRIS [Suspect]
     Active Substance: AMBRISENTAN
     Indication: PRODUCT USED FOR UNKNOWN INDICATION
     Dosage: 10 MG, QD
     Route: 065
     Dates: start: 20131009

REACTIONS (5)
  - Sinus disorder [Unknown]
  - Vascular cauterisation [Unknown]
  - Nasal congestion [Unknown]
  - Dizziness [Unknown]
  - Epistaxis [Unknown]
